FAERS Safety Report 24611727 (Version 5)
Quarter: 2025Q4

REPORT INFORMATION
  Report Type: Spontaneous
  Country: US (occurrence: US)
  Receive Date: 20241113
  Receipt Date: 20251114
  Transmission Date: 20260118
  Serious: Yes (Other)
  Sender: NOVARTIS
  Company Number: US-002147023-NVSC2024US218663

PATIENT
  Sex: Male

DRUGS (1)
  1. MEKINIST [Suspect]
     Active Substance: TRAMETINIB DIMETHYL SULFOXIDE
     Indication: Langerhans^ cell histiocytosis
     Dosage: 1.5 MG, QD
     Route: 048
     Dates: start: 202410

REACTIONS (5)
  - Cardiac dysfunction [Unknown]
  - Skin toxicity [Unknown]
  - Rash [Unknown]
  - Visual impairment [Unknown]
  - Off label use [Unknown]
